FAERS Safety Report 7831605-3 (Version None)
Quarter: 2011Q4

REPORT INFORMATION
  Report Type: 
  Country: None (occurrence: None)
  Receive Date: 20111021
  Receipt Date: 20111014
  Transmission Date: 20120403
  Serious: Yes (Other)
  Sender: FDA-Public Use
  Company Number: US-SANOFI-AVENTIS-2011SA068590

PATIENT
  Sex: Female

DRUGS (3)
  1. NOVOLOG [Concomitant]
  2. LANTUS [Suspect]
     Dosage: 38 UNITS IN THE AM AND 12 UNITS IN THE PM
     Route: 058
  3. SOLOSTAR [Suspect]

REACTIONS (1)
  - KNEE ARTHROPLASTY [None]
